FAERS Safety Report 15480789 (Version 1)
Quarter: 2018Q4

REPORT INFORMATION
  Report Type: Report from Study
  Country: MX (occurrence: MX)
  Receive Date: 20181010
  Receipt Date: 20181010
  Transmission Date: 20190205
  Serious: Yes (Hospitalization)
  Sender: FDA-Public Use
  Company Number: PHHY2018MX120133

PATIENT
  Sex: Female

DRUGS (5)
  1. OMEPRAZOLE. [Concomitant]
     Active Substance: OMEPRAZOLE
     Indication: PROPHYLAXIS
     Dosage: 1 DF, QD, 3 YEARS AGO APPROXIMATELY
     Route: 048
  2. SUCRALFATE. [Concomitant]
     Active Substance: SUCRALFATE
     Indication: COLITIS
  3. ESPAVEN ENZIMATICO [Concomitant]
     Indication: COLITIS
     Dosage: 1 DF, 5 YEARS AGO, AFTER MEAL
     Route: 048
  4. SUCRALFATE. [Concomitant]
     Active Substance: SUCRALFATE
     Indication: GASTRITIS
     Dosage: 1 DF, UNK EVERY 12 HOURS OR ONCE A DAY, DEPENDING ON HOW SHE FELT 5 YEARS AGO APPROXIMATELY
     Route: 048
  5. EXFORGE HCT [Suspect]
     Active Substance: AMLODIPINE BESYLATE\HYDROCHLOROTHIAZIDE\VALSARTAN
     Indication: HYPERTENSION
     Dosage: 1 DF, QD (0.5 TABLET IN MORNING, 0.5 TABLET IN EVENING)
     Route: 048
     Dates: start: 2015

REACTIONS (3)
  - Cardiac valve disease [Recovered/Resolved]
  - Wrong technique in product usage process [Unknown]
  - Product prescribing error [Unknown]

NARRATIVE: CASE EVENT DATE: 2015
